FAERS Safety Report 6953921-X (Version None)
Quarter: 2010Q3

REPORT INFORMATION
  Report Type: 
  Country: None (occurrence: None)
  Receive Date: 20100829
  Receipt Date: 20100630
  Transmission Date: 20110219
  Serious: No
  Sender: FDA-Public Use
  Company Number: US-ABBOTT-10P-163-0654622-00

PATIENT
  Sex: Male
  Weight: 104.42 kg

DRUGS (6)
  1. NIASPAN [Suspect]
     Indication: HYPERLIPIDAEMIA
     Dosage: AT BEDTIME
     Dates: start: 20100615
  2. NIASPAN [Suspect]
     Dosage: AT BEDTIME
     Dates: start: 20100629
  3. PLAVIX [Concomitant]
     Indication: PRODUCT USED FOR UNKNOWN INDICATION
  4. ASPIRIN [Concomitant]
     Indication: PRODUCT USED FOR UNKNOWN INDICATION
  5. CRESTOR [Concomitant]
     Indication: PRODUCT USED FOR UNKNOWN INDICATION
  6. UNKNOWN MEDICATION [Concomitant]
     Indication: BLOOD PRESSURE

REACTIONS (1)
  - FLUSHING [None]
